FAERS Safety Report 11203145 (Version 1)
Quarter: 2015Q2

REPORT INFORMATION
  Report Type: Report from Study
  Country: CA (occurrence: CA)
  Receive Date: 20150619
  Receipt Date: 20150619
  Transmission Date: 20150821
  Serious: Yes (Life-Threatening, Hospitalization)
  Sender: FDA-Public Use
  Company Number: CA-JNJFOC-20150612348

PATIENT
  Age: 59 Year
  Sex: Male
  Weight: 122.5 kg

DRUGS (2)
  1. REMICADE [Suspect]
     Active Substance: INFLIXIMAB
     Indication: PSORIATIC ARTHROPATHY
     Route: 042
     Dates: start: 20150601
  2. REMICADE [Suspect]
     Active Substance: INFLIXIMAB
     Indication: PSORIATIC ARTHROPATHY
     Route: 042
     Dates: start: 20150615, end: 20150615

REACTIONS (8)
  - Nausea [Unknown]
  - Infusion related reaction [Unknown]
  - Arthralgia [Unknown]
  - Aphasia [Unknown]
  - Oxygen saturation decreased [Unknown]
  - Pain [Unknown]
  - Chest pain [Unknown]
  - Restlessness [Unknown]

NARRATIVE: CASE EVENT DATE: 20150615
